FAERS Safety Report 7564440-4 (Version None)
Quarter: 2011Q2

REPORT INFORMATION
  Report Type: 
  Country: None (occurrence: None)
  Receive Date: 20110622
  Receipt Date: 20110610
  Transmission Date: 20111010
  Serious: Yes (Hospitalization)
  Sender: FDA-Public Use
  Company Number: PHHY2011US26150

PATIENT
  Sex: Male
  Weight: 13 kg

DRUGS (4)
  1. BACTRIM [Concomitant]
  2. RED BLOOD CELLS [Concomitant]
  3. EXJADE [Suspect]
     Indication: APLASTIC ANAEMIA
     Dosage: 250 MG, QD
     Route: 048
     Dates: start: 20110301
  4. MEROPENEM [Concomitant]

REACTIONS (7)
  - BLOOD POTASSIUM DECREASED [None]
  - PYREXIA [None]
  - RHINORRHOEA [None]
  - UPPER RESPIRATORY TRACT INFECTION [None]
  - NEUTROPENIA [None]
  - DIARRHOEA [None]
  - PLATELET COUNT DECREASED [None]
